FAERS Safety Report 15378267 (Version 1)
Quarter: 2018Q3

REPORT INFORMATION
  Report Type: Spontaneous
  Country: CI (occurrence: CI)
  Receive Date: 20180913
  Receipt Date: 20180913
  Transmission Date: 20181010
  Serious: Yes (Life-Threatening, Other)
  Sender: FDA-Public Use
  Company Number: PHHY2018CI094551

PATIENT
  Age: 70 Year
  Sex: Male

DRUGS (1)
  1. COARTEM [Suspect]
     Active Substance: ARTEMETHER\LUMEFANTRINE
     Indication: MALARIA
     Dosage: 1 DF, QD
     Route: 048
     Dates: start: 20180831, end: 20180902

REACTIONS (4)
  - Dyspnoea [Unknown]
  - Bradycardia [Unknown]
  - Hypotension [Unknown]
  - Cough [Unknown]

NARRATIVE: CASE EVENT DATE: 20180906
